FAERS Safety Report 4696317-6 (Version None)
Quarter: 2005Q2

REPORT INFORMATION
  Report Type: 
  Country: None (occurrence: None)
  Receive Date: 20050620
  Receipt Date: 20050608
  Transmission Date: 20051028
  Serious: Yes (Hospitalization, Other)
  Sender: FDA-Public Use
  Company Number: 2005087328

PATIENT
  Sex: Male
  Weight: 98.8842 kg

DRUGS (3)
  1. XANAX [Suspect]
     Indication: ANXIETY
     Dosage: 1.5 MG (1 MG, 3 IN 1 D) ORAL
     Route: 048
     Dates: start: 19870101
  2. CIPROFLOXACIN [Suspect]
     Indication: ILL-DEFINED DISORDER
  3. PROPRANOLOL [Concomitant]

REACTIONS (4)
  - EXTRASYSTOLES [None]
  - LABELLED DRUG-DRUG INTERACTION MEDICATION ERROR [None]
  - MACULAR DEGENERATION [None]
  - PNEUMONIA [None]
